FAERS Safety Report 4783030-X (Version None)
Quarter: 2005Q3

REPORT INFORMATION
  Report Type: 
  Country: None (occurrence: None)
  Receive Date: 20050927
  Receipt Date: 20050909
  Transmission Date: 20060218
  Serious: Yes (Hospitalization, Other)
  Sender: FDA-Public Use
  Company Number: DSA_27160_2005

PATIENT
  Sex: Male

DRUGS (11)
  1. DILTIAZEM HCL [Suspect]
     Indication: HYPERTENSION
     Dosage: DF
     Dates: end: 20050801
  2. LASIX [Suspect]
     Dosage: DF
  3. TIKOSYN [Suspect]
     Indication: ATRIAL FIBRILLATION
     Dosage: 500 MCG BID
  4. ANTIVERT [Suspect]
     Indication: DIZZINESS
     Dosage: 25 MG TID
  5. ALDACTONE [Suspect]
     Dosage: 25 MG BID
  6. ADVAIR DISKUS 100/50 [Concomitant]
  7. PREDNISONE [Concomitant]
  8. PROTONIX [Concomitant]
  9. SPIRIVA [Concomitant]
  10. ZOCOR [Concomitant]
  11. DOPAMINE [Concomitant]

REACTIONS (5)
  - DIZZINESS [None]
  - HYPOTENSION [None]
  - HYPOVOLAEMIA [None]
  - INFLUENZA LIKE ILLNESS [None]
  - RENAL FAILURE [None]
